FAERS Safety Report 4887074-9 (Version None)
Quarter: 2006Q1

REPORT INFORMATION
  Report Type: 
  Country: None (occurrence: None)
  Receive Date: 20060120
  Receipt Date: 20051004
  Transmission Date: 20060701
  Serious: Yes (Hospitalization, Disabling)
  Sender: FDA-Public Use
  Company Number: US-MERCK-0510USA03637

PATIENT
  Age: 45 Year
  Sex: Male
  Weight: 82 kg

DRUGS (7)
  1. ASPIRIN [Concomitant]
     Indication: PROPHYLAXIS
     Route: 065
     Dates: start: 19990101
  2. VIOXX [Suspect]
     Indication: ARTHRALGIA
     Route: 048
     Dates: start: 20000325, end: 20000801
  3. CEPHALEXIN [Concomitant]
     Indication: INFECTION
     Route: 065
  4. PRINIVIL [Concomitant]
     Indication: HYPERTENSION
     Route: 065
     Dates: start: 19990101
  5. COREG [Concomitant]
     Indication: HYPERTENSION
     Route: 065
     Dates: start: 19990101
  6. FUROSEMIDE [Concomitant]
     Indication: FLUID RETENTION
     Route: 065
     Dates: start: 19990101
  7. ASPIRIN [Concomitant]
     Indication: PAIN
     Route: 065
     Dates: start: 19990101

REACTIONS (14)
  - ANXIETY [None]
  - CARDIAC FAILURE CONGESTIVE [None]
  - CARDIAC MURMUR [None]
  - CARDIOMYOPATHY [None]
  - CHEST PAIN [None]
  - DYSPEPSIA [None]
  - DYSPNOEA [None]
  - EJECTION FRACTION DECREASED [None]
  - GOUT [None]
  - HAEMATOCHEZIA [None]
  - HEART RATE IRREGULAR [None]
  - MYOCARDIAL INFARCTION [None]
  - NECK INJURY [None]
  - VENTRICULAR TACHYCARDIA [None]
